FAERS Safety Report 13520021 (Version 2)
Quarter: 2017Q2

REPORT INFORMATION
  Report Type: Spontaneous
  Country: IL (occurrence: IL)
  Receive Date: 20170506
  Receipt Date: 20170621
  Transmission Date: 20170830
  Serious: Yes (Hospitalization, Other)
  Sender: FDA-Public Use
  Company Number: IL-BRISTOL-MYERS SQUIBB COMPANY-BMS-2017-038830

PATIENT
  Age: 68 Year
  Sex: Male

DRUGS (1)
  1. ELIQUIS [Suspect]
     Active Substance: APIXABAN
     Indication: CEREBROVASCULAR ACCIDENT PROPHYLAXIS
     Dosage: 10 MG, QD
     Route: 065
     Dates: start: 20170217, end: 20170224

REACTIONS (7)
  - Off label use [Unknown]
  - Pericardial excision [Unknown]
  - Chest pain [Unknown]
  - Cardiac tamponade [Recovering/Resolving]
  - Pulmonary congestion [Unknown]
  - Dyspnoea [Unknown]
  - Pericardial drainage [Unknown]
